FAERS Safety Report 9008321 (Version 3)
Quarter: 2013Q1

REPORT INFORMATION
  Report Type: Spontaneous
  Country: GB (occurrence: GB)
  Receive Date: 20130111
  Receipt Date: 20130305
  Transmission Date: 20140127
  Serious: Yes (Death, Hospitalization)
  Sender: FDA-Public Use
  Company Number: PHFR2013GB000548

PATIENT
  Sex: Male

DRUGS (2)
  1. CLOZARIL [Suspect]
     Indication: SCHIZOPHRENIA
     Route: 048
     Dates: start: 20070327
  2. CLOZARIL [Suspect]
     Dosage: 450 G, UNK
     Route: 048

REACTIONS (3)
  - Urinary tract infection [Fatal]
  - Type 2 diabetes mellitus [Fatal]
  - Schizophrenia [Fatal]
